FAERS Safety Report 5581879-7 (Version None)
Quarter: 2008Q1

REPORT INFORMATION
  Report Type: 
  Country: None (occurrence: None)
  Receive Date: 20080104
  Receipt Date: 20071228
  Transmission Date: 20080703
  Serious: Yes (Hospitalization, Other)
  Sender: FDA-Public Use
  Company Number: US-PFIZER INC-2008000226

PATIENT
  Sex: Male

DRUGS (3)
  1. ZYRTEC [Suspect]
     Indication: HISTAMINE LEVEL
     Route: 048
  2. CHLORPHENIRAMINE/DEXTROMETHORPHAN [Interacting]
     Indication: NASOPHARYNGITIS
     Dates: start: 20071201, end: 20071225
  3. METFORMIN [Concomitant]
     Indication: DIABETES MELLITUS

REACTIONS (5)
  - CONVULSION [None]
  - DRUG INTERACTION [None]
  - EYE DISORDER [None]
  - HYPOTENSION [None]
  - LOSS OF CONSCIOUSNESS [None]
